FAERS Safety Report 5379713-3 (Version None)
Quarter: 2007Q3

REPORT INFORMATION
  Report Type: 
  Country: None (occurrence: None)
  Receive Date: 20070706
  Receipt Date: 20070702
  Transmission Date: 20080115
  Serious: Yes (Hospitalization)
  Sender: FDA-Public Use
  Company Number: PHNU2007DE02055

PATIENT
  Age: 17 Year
  Sex: Female
  Weight: 45 kg

DRUGS (2)
  1. VOLTAREN [Suspect]
     Indication: BONE PAIN
     Dosage: 75 MG, QD
     Route: 048
     Dates: start: 20070508, end: 20070508
  2. VOLTAREN [Suspect]
     Dosage: 150MG/DAY
     Route: 048
     Dates: start: 20070509, end: 20070509

REACTIONS (9)
  - ALBUMINURIA [None]
  - BLOOD CREATININE INCREASED [None]
  - FLANK PAIN [None]
  - GAMMA-GLUTAMYLTRANSFERASE INCREASED [None]
  - GLOMERULAR FILTRATION RATE INCREASED [None]
  - HAEMATURIA [None]
  - PROTEINURIA [None]
  - RENAL DISORDER [None]
  - TRANSAMINASES INCREASED [None]
